FAERS Safety Report 5867375-8 (Version None)
Quarter: 2008Q3

REPORT INFORMATION
  Report Type: 
  Country: None (occurrence: None)
  Receive Date: 20080902
  Receipt Date: 20080825
  Transmission Date: 20090109
  Serious: Yes (Hospitalization)
  Sender: FDA-Public Use
  Company Number: PHHY2008SE19037

PATIENT
  Sex: Female

DRUGS (5)
  1. VOLTAREN [Suspect]
  2. PAMOL [Concomitant]
     Dosage: 500 MG
  3. METOPROLOL TARTRATE [Concomitant]
  4. BETAPRED [Concomitant]
     Dosage: 0.5 MG
  5. OMEPRAZOLE [Concomitant]
     Dosage: 20 MG

REACTIONS (3)
  - BLOOD CREATININE INCREASED [None]
  - BLOOD UREA INCREASED [None]
  - HYPERKALAEMIA [None]
